FAERS Safety Report 25896090 (Version 1)
Quarter: 2025Q4

REPORT INFORMATION
  Report Type: Report from Study
  Country: US (occurrence: US)
  Receive Date: 20251008
  Receipt Date: 20251008
  Transmission Date: 20260117
  Serious: Yes (Other)
  Sender: TEVA
  Company Number: US-TEVA-VS-3347424

PATIENT
  Age: 56 Year
  Sex: Male

DRUGS (1)
  1. AUSTEDO XR [Suspect]
     Active Substance: DEUTETRABENAZINE
     Indication: Dyskinesia
     Dosage: 6/20/2025 ONCE DAILY 30 MG
     Route: 048
     Dates: start: 20250313, end: 20250912

REACTIONS (10)
  - Nervous system disorder [Unknown]
  - Cogwheel rigidity [Unknown]
  - Fall [Unknown]
  - Cerebellar ataxia [Not Recovered/Not Resolved]
  - Parkinsonism [Not Recovered/Not Resolved]
  - Aphasia [Not Recovered/Not Resolved]
  - Vitamin B12 deficiency [Unknown]
  - Agitation [Recovered/Resolved]
  - Balance disorder [Not Recovered/Not Resolved]
  - Suicidal ideation [Recovered/Resolved]

NARRATIVE: CASE EVENT DATE: 20250101
